FAERS Safety Report 24049399 (Version 1)
Quarter: 2024Q3

REPORT INFORMATION
  Report Type: Spontaneous
  Country: GB (occurrence: GB)
  Receive Date: 20240704
  Receipt Date: 20240704
  Transmission Date: 20241016
  Serious: No
  Sender: ALKEM
  Company Number: None

PATIENT
  Age: 27 Year
  Sex: Female
  Weight: 71 kg

DRUGS (10)
  1. IBUPROFEN [Suspect]
     Active Substance: IBUPROFEN
     Indication: Ill-defined disorder
     Dosage: UNK
     Route: 065
     Dates: start: 20240415
  2. DICLOFENAC DIETHYLAMINE [Concomitant]
     Active Substance: DICLOFENAC DIETHYLAMINE
     Indication: Ill-defined disorder
     Dosage: 1 DOSAGE FORM (1 APPLICATION - ADMIN TIMES: 08:00, 17:00)
     Route: 065
     Dates: start: 20240403, end: 20240415
  3. BECLOMETHASONE\FORMOTEROL [Concomitant]
     Active Substance: BECLOMETHASONE\FORMOTEROL
     Indication: Ill-defined disorder
     Dosage: 1 DOSAGE FORM (1 ACTUATION - ADMIN TIMES: 08:00, 17:00)
     Route: 065
     Dates: start: 20240108, end: 20240416
  4. IBUPROFEN [Concomitant]
     Active Substance: IBUPROFEN
     Indication: Ill-defined disorder
     Dosage: 1 DOSAGE FORM, PRN (1 APPLICATION - AS REQUIRED. TAKE: NO MORE THAN 1 APPLICATION IN 8 HOURS)
     Route: 065
     Dates: start: 20240425, end: 20240523
  5. LUFORBEC (BECLOMETASONE DIPROPIONATE, FORMOTEROL FUMARATE DIHYDRATE) [Concomitant]
     Indication: Ill-defined disorder
     Dosage: 1-2 ACTUATION, PRN (AS REQUIRED. TAKE: NO MORE THAN 4 ACTUATION IN 24 HOURS)
     Route: 065
     Dates: start: 20240425, end: 20240523
  6. MIRTAZAPINE [Concomitant]
     Active Substance: MIRTAZAPINE
     Indication: Ill-defined disorder
     Dosage: 1 DOSAGE FORM (17:00 -1 TABLETS)
     Route: 065
     Dates: start: 20240415, end: 20240502
  7. ACETAMINOPHEN [Concomitant]
     Active Substance: ACETAMINOPHEN
     Indication: Ill-defined disorder
     Dosage: 2 DOSAGE FORM (2 TABLETS)
     Route: 065
     Dates: start: 20240422, end: 20240422
  8. PROCHLORPERAZINE [Concomitant]
     Active Substance: PROCHLORPERAZINE
     Indication: Ill-defined disorder
     Dosage: 1 DOSAGE FORM (TABLET)
     Route: 065
     Dates: start: 20240227, end: 20240308
  9. PROMETHAZINE HYDROCHLORIDE [Concomitant]
     Active Substance: PROMETHAZINE HYDROCHLORIDE
     Indication: Ill-defined disorder
     Dosage: 2 DOSAGE FORM (2 TABLETS)
     Route: 065
     Dates: start: 20240227, end: 20240303
  10. ALBUTEROL [Concomitant]
     Active Substance: ALBUTEROL
     Indication: Ill-defined disorder
     Dosage: 2 DOSAGE FORM, PRN (2 ACTUATION - AS REQUIRED. TAKE: NO MORE THAN 8 ACTUATION IN 24 HOURS)
     Route: 065
     Dates: start: 20240108

REACTIONS (1)
  - Hypersensitivity [Recovered/Resolved]

NARRATIVE: CASE EVENT DATE: 20240523
